FAERS Safety Report 8179384-7 (Version None)
Quarter: 2012Q1

REPORT INFORMATION
  Report Type: 
  Country: None (occurrence: None)
  Receive Date: 20120302
  Receipt Date: 20120222
  Transmission Date: 20120608
  Serious: Yes (Hospitalization)
  Sender: FDA-Public Use
  Company Number: DE-JNJFOC-20120211566

PATIENT
  Age: 36 Year
  Sex: Female

DRUGS (4)
  1. XEPLION [Suspect]
     Indication: PRODUCT USED FOR UNKNOWN INDICATION
     Route: 030
     Dates: start: 20110728, end: 20110728
  2. XEPLION [Suspect]
     Route: 030
     Dates: start: 20110825, end: 20110825
  3. XEPLION [Suspect]
     Route: 030
     Dates: start: 20110721, end: 20110721
  4. XEPLION [Suspect]
     Route: 030
     Dates: start: 20110922

REACTIONS (7)
  - FATIGUE [None]
  - NEURALGIA [None]
  - DIZZINESS [None]
  - AKATHISIA [None]
  - EXTRAPYRAMIDAL DISORDER [None]
  - ANXIETY [None]
  - PARANOIA [None]
